FAERS Safety Report 17881787 (Version 1)
Quarter: 2020Q2

REPORT INFORMATION
  Report Type: Spontaneous
  Country: US (occurrence: US)
  Receive Date: 20200610
  Receipt Date: 20200610
  Transmission Date: 20200714
  Serious: Yes (Hospitalization, Other)
  Sender: FDA-Public Use
  Company Number: US-OTSUKA-2015_017541

PATIENT
  Age: 2 Year
  Sex: Female

DRUGS (1)
  1. ABILIFY [Suspect]
     Active Substance: ARIPIPRAZOLE
     Indication: PRODUCT USED FOR UNKNOWN INDICATION
     Dosage: 15 MG, UNK
     Route: 065

REACTIONS (11)
  - Lethargy [Recovered/Resolved]
  - Ataxia [Recovered/Resolved]
  - Accidental overdose [Unknown]
  - Accidental exposure to product by child [Recovered/Resolved]
  - Hypothermia [Recovered/Resolved]
  - Irritability [Unknown]
  - Somnolence [Recovered/Resolved]
  - Vomiting [Recovered/Resolved]
  - False positive investigation result [Unknown]
  - Sluggishness [Unknown]
  - Agitation [Recovered/Resolved]
